FAERS Safety Report 5581890-6 (Version None)
Quarter: 2008Q1

REPORT INFORMATION
  Report Type: 
  Country: None (occurrence: None)
  Receive Date: 20080104
  Receipt Date: 20071227
  Transmission Date: 20080703
  Serious: Yes (Other)
  Sender: FDA-Public Use
  Company Number: US-JNJFOC-20080100500

PATIENT
  Sex: Male
  Weight: 78.02 kg

DRUGS (1)
  1. REMICADE [Suspect]
     Indication: CROHN'S DISEASE
     Dosage: EVERY 6-8 WEEKS
     Route: 042

REACTIONS (2)
  - CROHN'S DISEASE [None]
  - MICTURITION DISORDER [None]
